FAERS Safety Report 4751329-9 (Version None)
Quarter: 2005Q3

REPORT INFORMATION
  Report Type: 
  Country: None (occurrence: None)
  Receive Date: 20050822
  Receipt Date: 20050808
  Transmission Date: 20060218
  Serious: Yes (Death, Life-Threatening)
  Sender: FDA-Public Use
  Company Number: 2005017903

PATIENT
  Age: 69 Year
  Sex: Female
  Weight: 63.05 kg

DRUGS (10)
  1. DETROL LA [Suspect]
     Indication: HYPERTONIC BLADDER
     Dosage: 4 MG (4 MG, 1 IN 1 D), ORAL
     Route: 048
     Dates: start: 20050101, end: 20050112
  2. ELAVIL [Concomitant]
  3. POTASSIUM [Concomitant]
  4. IRON [Concomitant]
  5. AMIODARONE [Concomitant]
  6. ALPRAZOLAM [Concomitant]
  7. WARFARIN [Concomitant]
  8. VITAMIN B-12 [Concomitant]
  9. PROCRIT [Concomitant]
  10. FLOLAN [Concomitant]

REACTIONS (2)
  - DRY MOUTH [None]
  - PALPITATIONS [None]
